FAERS Safety Report 20318695 (Version 2)
Quarter: 2022Q1

REPORT INFORMATION
  Report Type: Spontaneous
  Country: US (occurrence: US)
  Receive Date: 20220110
  Receipt Date: 20220117
  Transmission Date: 20220423
  Serious: Yes (Hospitalization)
  Sender: FDA-Public Use
  Company Number: US-MALLINCKRODT-T202200005

PATIENT
  Age: 1 Year
  Sex: Female
  Weight: 12 kg

DRUGS (2)
  1. H.P. ACTHAR [Suspect]
     Active Substance: CORTICOTROPIN
     Indication: Infantile spasms
     Dosage: (52 UNITS) 0.65 MILLILITER, QD, DAY 1 TO 12
     Route: 065
     Dates: start: 20211230
  2. H.P. ACTHAR [Suspect]
     Active Substance: CORTICOTROPIN
     Dosage: UNK
     Route: 065
     Dates: start: 20220104, end: 202201

REACTIONS (5)
  - Brain neoplasm [Recovering/Resolving]
  - Brain tumour operation [Unknown]
  - Blood pressure increased [Unknown]
  - Blood glucose increased [Unknown]
  - Irritability [Unknown]

NARRATIVE: CASE EVENT DATE: 20220106
